FAERS Safety Report 8072808-5 (Version None)
Quarter: 2012Q1

REPORT INFORMATION
  Report Type: 
  Country: None (occurrence: None)
  Receive Date: 20120126
  Receipt Date: 20120119
  Transmission Date: 20120608
  Serious: Yes (Disabling, Other)
  Sender: FDA-Public Use
  Company Number: FR-ABBOTT-12P-056-0894994-00

PATIENT
  Sex: Female
  Weight: 57 kg

DRUGS (6)
  1. DESLORATADINE [Concomitant]
     Indication: PRODUCT USED FOR UNKNOWN INDICATION
  2. TRAVOPROST [Concomitant]
     Indication: OPEN ANGLE GLAUCOMA
     Dates: start: 20101201
  3. CIPROFLOXACIN HCL [Concomitant]
     Indication: PRODUCT USED FOR UNKNOWN INDICATION
  4. HUMIRA [Suspect]
     Indication: CROHN'S DISEASE
     Route: 058
     Dates: start: 20091007, end: 20101119
  5. VALDOXAN [Concomitant]
     Indication: DEPRESSION
     Dates: start: 20101201, end: 20110401
  6. VENLAFAXINE [Concomitant]
     Indication: DEPRESSION
     Dates: start: 20070101, end: 20100101

REACTIONS (11)
  - PNEUMONIA BACTERIAL [None]
  - CHALAZION [None]
  - OPEN ANGLE GLAUCOMA [None]
  - INFECTION SUSCEPTIBILITY INCREASED [None]
  - INTRAOCULAR PRESSURE INCREASED [None]
  - EYE PAIN [None]
  - HERPES ZOSTER OPHTHALMIC [None]
  - EYE INFECTION [None]
  - PNEUMONIA KLEBSIELLA [None]
  - UREAPLASMA INFECTION [None]
  - URINARY TRACT INFECTION [None]
